FAERS Safety Report 8738901 (Version 3)
Quarter: 2013Q1

REPORT INFORMATION
  Report Type: Report from Study
  Country: JP (occurrence: JP)
  Receive Date: 20120823
  Receipt Date: 20130129
  Transmission Date: 20140127
  Serious: Yes (Other)
  Sender: FDA-Public Use
  Company Number: JP-009507513-2012SP012857

PATIENT
  Age: 67 Year
  Sex: Male
  Weight: 66 kg

DRUGS (20)
  1. PEGINTRON [Suspect]
     Indication: CHRONIC HEPATITIS C
     Dosage: 1.5 MICROGRAM PER KILOGRAM, QW
     Route: 058
     Dates: start: 20120224, end: 20120612
  2. REBETOL [Suspect]
     Indication: CHRONIC HEPATITIS C
     Dosage: 800 MG, QD,CUMULATIVE DOSE:3200 MG
     Route: 048
     Dates: start: 20120224, end: 20120228
  3. REBETOL [Suspect]
     Dosage: 800 MG, QD
     Route: 048
     Dates: start: 20120302, end: 20120326
  4. REBETOL [Suspect]
     Dosage: 400 MG, QD
     Route: 048
     Dates: start: 20120327, end: 20120618
  5. REBETOL [Suspect]
     Dosage: UNK
  6. TELAVIC [Suspect]
     Indication: HEPATITIS C
     Dosage: 2250 MG, QD
     Route: 048
     Dates: start: 20120224, end: 20120228
  7. LOXONIN [Concomitant]
     Indication: PROPHYLAXIS
     Dosage: 60 MG, PRN
     Route: 048
     Dates: start: 20120224, end: 20120806
  8. LOXONIN [Concomitant]
     Dosage: UNK
  9. TAKEPRON [Concomitant]
     Indication: PROPHYLAXIS
     Dosage: 15 MG, HS
     Route: 048
     Dates: start: 20120224, end: 20120607
  10. ANTEBATE [Concomitant]
     Indication: ECZEMA NUMMULAR
     Dosage: 25 G, QD
     Route: 061
     Dates: start: 20120224
  11. PETROLATUM [Concomitant]
     Indication: ECZEMA NUMMULAR
     Dosage: 25 G, QD
     Route: 061
     Dates: start: 20120224
  12. BAYASPIRIN [Concomitant]
     Indication: PROPHYLAXIS
     Dosage: 100 MG, QM
     Route: 048
  13. HUMALOG [Concomitant]
     Indication: DIABETES MELLITUS
     Dosage: 6 UNITS/ 3 TIMES/ DAY, 6-6-6 UNIT (MORNING)(NOON)
     Route: 058
  14. NORVASC [Concomitant]
     Indication: HYPERTENSION
     Dosage: 5 MG, QM
     Route: 048
  15. CARDENALIN [Concomitant]
     Indication: HYPERTENSION
     Dosage: 1 MG, QAM
     Route: 048
  16. VALSARTAN [Concomitant]
     Indication: HYPERTENSION
     Dosage: UPDATE (14MAY2012)
     Route: 048
  17. LASIX (FUROSEMIDE) [Concomitant]
     Indication: HYPERTENSION
     Dosage: UPDATE (14MAY2012)
     Route: 048
  18. ALLEGRA [Concomitant]
     Dosage: UPDATE (14MAY2012)
     Route: 065
  19. AMINO ACIDS (UNSPECIFIED) [Concomitant]
     Dosage: UPDATE (14MAY2012)
     Route: 065
  20. PRIMPERAN [Concomitant]
     Dosage: UNK, PRN; FORMULATION POR
     Route: 048
     Dates: end: 20120710

REACTIONS (6)
  - Erythema [Recovered/Resolved]
  - Neutrophil count decreased [Recovered/Resolved]
  - Decreased appetite [Recovered/Resolved]
  - Nausea [Recovered/Resolved]
  - Pruritus [None]
  - Haemoglobin decreased [None]
